FAERS Safety Report 22854011 (Version 2)
Quarter: 2023Q4

REPORT INFORMATION
  Report Type: Spontaneous
  Country: US (occurrence: US)
  Receive Date: 20230823
  Receipt Date: 20231122
  Transmission Date: 20240109
  Serious: No
  Sender: FDA-Public Use
  Company Number: US-BRISTOL-MYERS SQUIBB COMPANY-2023-117540

PATIENT
  Age: 65 Year
  Sex: Male

DRUGS (7)
  1. REBLOZYL [Suspect]
     Active Substance: LUSPATERCEPT-AAMT
     Indication: Anaemia of malignant disease
     Route: 058
     Dates: start: 20230518
  2. REBLOZYL [Suspect]
     Active Substance: LUSPATERCEPT-AAMT
     Dosage: DOSE : 5;     FREQ : ONE INJECTION EVERY THREE WEEKS
     Route: 058
     Dates: start: 20230525
  3. REBLOZYL [Suspect]
     Active Substance: LUSPATERCEPT-AAMT
     Dosage: DOSE : 5;     FREQ : ONE INJECTION EVERY THREE WEEKS
     Route: 058
     Dates: start: 20230615
  4. REBLOZYL [Suspect]
     Active Substance: LUSPATERCEPT-AAMT
     Dosage: DOSE : 5;     FREQ : ONE INJECTION EVERY THREE WEEKS
     Route: 058
     Dates: start: 20230706
  5. REBLOZYL [Suspect]
     Active Substance: LUSPATERCEPT-AAMT
     Dosage: DOSE : 5;     FREQ : ONE INJECTION EVERY THREE WEEKS
     Route: 058
     Dates: start: 20230727
  6. REBLOZYL [Suspect]
     Active Substance: LUSPATERCEPT-AAMT
     Dosage: DOSE : 5;     FREQ : ONE INJECTION EVERY THREE WEEKS
     Route: 058
     Dates: start: 20230817
  7. MIRALAX [Concomitant]
     Active Substance: POLYETHYLENE GLYCOL 3350
     Indication: Product used for unknown indication

REACTIONS (1)
  - Drug ineffective [Unknown]
